FAERS Safety Report 12888181 (Version 1)
Quarter: 2016Q4

REPORT INFORMATION
  Report Type: Spontaneous
  Country: US (occurrence: US)
  Receive Date: 20161027
  Receipt Date: 20161027
  Transmission Date: 20170207
  Serious: Yes (Life-Threatening, Hospitalization, Other)
  Sender: FDA-Public Use
  Company Number: US-CONCORDIA PHARMACEUTICALS INC.-E2B_00007883

PATIENT
  Age: 62 Year
  Sex: Female

DRUGS (20)
  1. LAMICTAL XR [Interacting]
     Active Substance: LAMOTRIGINE
     Route: 048
  2. DEPAKOTE [Suspect]
     Active Substance: DIVALPROEX SODIUM
     Indication: PRODUCT USED FOR UNKNOWN INDICATION
     Route: 065
  3. LAMICTAL XR [Interacting]
     Active Substance: LAMOTRIGINE
     Indication: SEIZURE
     Route: 048
     Dates: start: 2001
  4. LAMICTAL XR [Suspect]
     Active Substance: LAMOTRIGINE
     Route: 065
  5. ASPIRIN. [Suspect]
     Active Substance: ASPIRIN
     Indication: EPILEPSY
     Route: 065
  6. CELEXA [Concomitant]
     Active Substance: CITALOPRAM HYDROBROMIDE
     Indication: DEPRESSION
     Dosage: UNKNOWN
     Dates: end: 2014
  7. ZONEGRAN [Suspect]
     Active Substance: ZONISAMIDE
     Indication: PRODUCT USED FOR UNKNOWN INDICATION
     Dates: start: 201312
  8. BACTRIM [Suspect]
     Active Substance: SULFAMETHOXAZOLE\TRIMETHOPRIM
     Indication: PRODUCT USED FOR UNKNOWN INDICATION
     Route: 065
  9. BENADRYL [Suspect]
     Active Substance: DIPHENHYDRAMINE HYDROCHLORIDE
     Indication: PRURITUS
     Route: 065
     Dates: start: 201607
  10. LAMICTAL XR [Interacting]
     Active Substance: LAMOTRIGINE
  11. LYRICA [Suspect]
     Active Substance: PREGABALIN
     Indication: PRODUCT USED FOR UNKNOWN INDICATION
     Route: 065
  12. LAMICTAL XR [Interacting]
     Active Substance: LAMOTRIGINE
     Indication: EPILEPSY
     Route: 048
     Dates: start: 2002
  13. TRAZODONE [Concomitant]
     Active Substance: TRAZODONE HYDROCHLORIDE
     Indication: SLEEP DISORDER
     Dosage: UNKNOWN
     Dates: start: 1999
  14. VITAMIN B12 [Concomitant]
     Active Substance: CYANOCOBALAMIN
  15. VITAMIN D [Concomitant]
     Active Substance: CHOLECALCIFEROL
  16. LAMICTAL XR [Interacting]
     Active Substance: LAMOTRIGINE
     Dosage: 200 MG IN THE MORNING AND 300MG IN THE NIGHT
  17. LAMICTAL XR [Suspect]
     Active Substance: LAMOTRIGINE
     Indication: SEIZURE
     Route: 065
     Dates: start: 2012
  18. LAMICTAL XR [Suspect]
     Active Substance: LAMOTRIGINE
     Route: 065
  19. LAMOTRIGINE. [Suspect]
     Active Substance: LAMOTRIGINE
     Indication: EPILEPSY
     Route: 065
  20. CEREFOLIN NAC [Concomitant]

REACTIONS (23)
  - Drug interaction [Unknown]
  - Drug hypersensitivity [Unknown]
  - Arthralgia [Unknown]
  - Seizure [Recovered/Resolved]
  - Anticonvulsant drug level increased [Unknown]
  - Drug ineffective [Unknown]
  - Joint swelling [Unknown]
  - Overdose [Unknown]
  - Diarrhoea [Not Recovered/Not Resolved]
  - Scratch [Unknown]
  - Nausea [Not Recovered/Not Resolved]
  - Hospitalisation [Unknown]
  - Apparent death [Unknown]
  - Mental disorder [Unknown]
  - Adverse drug reaction [Unknown]
  - Anticonvulsant drug level decreased [Unknown]
  - Fall [Unknown]
  - Urticaria [Recovered/Resolved]
  - Rash [Not Recovered/Not Resolved]
  - Adverse event [Unknown]
  - Pruritus [Not Recovered/Not Resolved]
  - Suicide attempt [Unknown]
  - Gastrointestinal disorder [Unknown]

NARRATIVE: CASE EVENT DATE: 20150723
